FAERS Safety Report 6979736-4 (Version None)
Quarter: 2010Q3

REPORT INFORMATION
  Report Type: 
  Country: None (occurrence: None)
  Receive Date: 20100914
  Receipt Date: 20100906
  Transmission Date: 20110219
  Serious: Yes (Hospitalization)
  Sender: FDA-Public Use
  Company Number: PHHO2010FR13488

PATIENT
  Sex: Male
  Weight: 71 kg

DRUGS (18)
  1. CERTICAN [Suspect]
     Indication: RENAL TRANSPLANT
     Dosage: 0.5 MG, BID
     Route: 048
     Dates: start: 20100614
  2. CERTICAN [Suspect]
     Dosage: 0.75 MG, BID
     Route: 048
  3. CELLCEPT [Suspect]
     Indication: RENAL TRANSPLANT
     Dosage: 500 MG
     Route: 048
     Dates: start: 20100505, end: 20100722
  4. CELLCEPT [Suspect]
     Dosage: NO TREATMENT
     Dates: start: 20100722, end: 20100727
  5. CELLCEPT [Suspect]
     Dosage: 500 MG, BID
     Route: 048
     Dates: start: 20100728
  6. MYCOPHENOLATE MOFETIL [Concomitant]
     Indication: RENAL TRANSPLANT
     Dosage: UNK
  7. SOLUPRED [Concomitant]
  8. MOPRAL [Concomitant]
  9. NEBIVOLOL HCL [Concomitant]
  10. TARDYFERON [Concomitant]
  11. ARANESP [Concomitant]
  12. KALEORID [Concomitant]
  13. IPERTEN [Concomitant]
  14. COLECALCIFEROL [Concomitant]
  15. FUNGIZONE [Concomitant]
  16. PHOSPHONEUROS [Concomitant]
  17. NOVONORM [Concomitant]
  18. MAG 2 [Concomitant]

REACTIONS (2)
  - LEUKOPENIA [None]
  - NEUTROPENIA [None]
